FAERS Safety Report 21908730 (Version 7)
Quarter: 2025Q2

REPORT INFORMATION
  Report Type: Spontaneous
  Country: JP (occurrence: JP)
  Receive Date: 20230125
  Receipt Date: 20250425
  Transmission Date: 20250717
  Serious: Yes (Other)
  Sender: PFIZER
  Company Number: JP-ONO-2023JP001251

PATIENT
  Age: 71 Year
  Sex: Male

DRUGS (7)
  1. BRAFTOVI [Suspect]
     Active Substance: ENCORAFENIB
     Indication: Colon cancer
     Route: 048
     Dates: start: 20230117, end: 20230118
  2. BRAFTOVI [Suspect]
     Active Substance: ENCORAFENIB
     Route: 048
     Dates: end: 2023
  3. BRAFTOVI [Suspect]
     Active Substance: ENCORAFENIB
     Dosage: 150 MG, DAILY
     Route: 048
     Dates: start: 2023
  4. MEKTOVI [Suspect]
     Active Substance: BINIMETINIB
     Indication: Colon cancer
     Route: 048
     Dates: start: 20230117, end: 20230118
  5. MEKTOVI [Suspect]
     Active Substance: BINIMETINIB
     Route: 048
  6. CETUXIMAB [Concomitant]
     Active Substance: CETUXIMAB
     Indication: Colon cancer
     Route: 065
     Dates: end: 2023
  7. CETUXIMAB [Concomitant]
     Active Substance: CETUXIMAB
     Route: 065

REACTIONS (4)
  - Serous retinal detachment [Recovered/Resolved]
  - Macular oedema [Recovered/Resolved]
  - Nausea [Recovered/Resolved]
  - Melanocytic naevus [Not Recovered/Not Resolved]

NARRATIVE: CASE EVENT DATE: 20230101
